FAERS Safety Report 10269914 (Version 1)
Quarter: 2014Q3

REPORT INFORMATION
  Report Type: Not Available
  Country: NL (occurrence: NL)
  Receive Date: 20140701
  Receipt Date: 20140701
  Transmission Date: 20150326
  Serious: Yes (Other)
  Sender: FDA-Public Use
  Company Number: NL-NAPPMUNDI-GBR-2014-0018899

PATIENT
  Sex: Female
  Weight: 51 kg

DRUGS (1)
  1. OXYCODONE HCL IR CAPSULE 5 MG [Suspect]
     Active Substance: OXYCODONE HYDROCHLORIDE
     Indication: PAIN IN EXTREMITY
     Dosage: 5 MG, TID
     Route: 048
     Dates: start: 20131205, end: 20140312

REACTIONS (3)
  - Inflammation [Recovering/Resolving]
  - Scar [Recovering/Resolving]
  - Emotional distress [Not Recovered/Not Resolved]
